FAERS Safety Report 18493498 (Version 2)
Quarter: 2021Q1

REPORT INFORMATION
  Report Type: Spontaneous
  Country: DE (occurrence: DE)
  Receive Date: 20201112
  Receipt Date: 20210102
  Transmission Date: 20210419
  Serious: Yes (Hospitalization, Other)
  Sender: FDA-Public Use
  Company Number: DE-TAKEDA-2020TUS048382

PATIENT
  Age: 39 Year
  Sex: Female

DRUGS (5)
  1. ELVANSE [Suspect]
     Active Substance: LISDEXAMFETAMINE DIMESYLATE
     Indication: DEPRESSION
     Dosage: 50 MILLIGRAM
     Route: 065
  2. ELVANSE [Suspect]
     Active Substance: LISDEXAMFETAMINE DIMESYLATE
     Indication: BORDERLINE PERSONALITY DISORDER
     Dosage: 30 MILLIGRAM
     Route: 065
     Dates: start: 202010, end: 202011
  3. ELONTRIL [Concomitant]
     Active Substance: BUPROPION HYDROCHLORIDE
     Dosage: 300 MILLIGRAM
     Route: 065
  4. BUPROPION. [Concomitant]
     Active Substance: BUPROPION
  5. MEDIKINET [METHYLPHENIDATE HYDROCHLORIDE] [Concomitant]
     Active Substance: METHYLPHENIDATE HYDROCHLORIDE
     Dosage: UNK
     Dates: start: 202005, end: 202010

REACTIONS (6)
  - Restlessness [Recovered/Resolved]
  - Suicidal ideation [Unknown]
  - Heart rate increased [Recovered/Resolved]
  - Affect lability [Recovered/Resolved]
  - Tearfulness [Recovered/Resolved]
  - Anxiety disorder [Recovered/Resolved]

NARRATIVE: CASE EVENT DATE: 202010
